FAERS Safety Report 8057133-0 (Version None)
Quarter: 2012Q1

REPORT INFORMATION
  Report Type: 
  Country: None (occurrence: None)
  Receive Date: 20120119
  Receipt Date: 20120113
  Transmission Date: 20120608
  Serious: Yes (Other)
  Sender: FDA-Public Use
  Company Number: US-PFIZER INC-2012010812

PATIENT
  Sex: Female

DRUGS (6)
  1. EFFEXOR XR [Suspect]
     Dosage: 150 MG, Q 6 PRN
     Route: 048
  2. LISINOPRIL [Concomitant]
     Dosage: UNK
  3. DEMADEX [Concomitant]
     Dosage: UNK
  4. LIPITOR [Concomitant]
     Dosage: UNK
  5. EFFEXOR XR [Suspect]
     Dosage: 75 MG, Q 6 PRN
     Route: 048
  6. TOPEX [Concomitant]
     Dosage: UNK

REACTIONS (22)
  - ANXIETY [None]
  - FEAR [None]
  - FATIGUE [None]
  - NERVOUSNESS [None]
  - NECK PAIN [None]
  - BACK PAIN [None]
  - ASTHENIA [None]
  - TREMOR [None]
  - NIGHTMARE [None]
  - DIZZINESS [None]
  - POLLAKIURIA [None]
  - BODY TEMPERATURE FLUCTUATION [None]
  - PANIC DISORDER [None]
  - PARAESTHESIA [None]
  - HEADACHE [None]
  - HYPOAESTHESIA [None]
  - ABDOMINAL PAIN UPPER [None]
  - DYSPEPSIA [None]
  - HEART RATE INCREASED [None]
  - SYNCOPE [None]
  - FEELING ABNORMAL [None]
  - FEELING HOT [None]
